FAERS Safety Report 12915702 (Version 1)
Quarter: 2016Q4

REPORT INFORMATION
  Report Type: Spontaneous
  Country: JP (occurrence: JP)
  Receive Date: 20161106
  Receipt Date: 20161106
  Transmission Date: 20170207
  Serious: Yes (Hospitalization)
  Sender: FDA-Public Use
  Company Number: JP-CONCORDIA PHARMACEUTICALS INC.-E2B_00007895

PATIENT
  Age: 66 Year
  Sex: Male

DRUGS (3)
  1. ZONEGRAN [Suspect]
     Active Substance: ZONISAMIDE
     Indication: CONVULSION PROPHYLAXIS
     Route: 048
     Dates: start: 20130827, end: 20160521
  2. CYMBALTA [Suspect]
     Active Substance: DULOXETINE HYDROCHLORIDE
     Indication: HYPOAESTHESIA
  3. CYMBALTA [Suspect]
     Active Substance: DULOXETINE HYDROCHLORIDE
     Indication: BACK PAIN
     Route: 048
     Dates: start: 20160502, end: 20160521

REACTIONS (1)
  - Liver disorder [Recovering/Resolving]

NARRATIVE: CASE EVENT DATE: 20160503
